FAERS Safety Report 8270573-X (Version None)
Quarter: 2012Q2

REPORT INFORMATION
  Report Type: 
  Country: None (occurrence: None)
  Receive Date: 20120410
  Receipt Date: 20120330
  Transmission Date: 20120825
  Serious: Yes (Hospitalization)
  Sender: FDA-Public Use
  Company Number: FR-BRISTOL-MYERS SQUIBB COMPANY-16494239

PATIENT
  Age: 70 Year
  Sex: Female

DRUGS (3)
  1. AMOXICILLIN [Concomitant]
     Route: 048
     Dates: start: 20120101, end: 20120201
  2. COUMADIN [Suspect]
     Indication: ATRIAL FIBRILLATION
     Dosage: STOPPED FOR ONE DAY THEN REINTRODUCED AT 2 MG DAILY INSTEAD OF 3 MG DAILY
     Route: 048
  3. OFLOXACIN [Interacting]
     Indication: URINARY TRACT INFECTION
     Route: 048
     Dates: start: 20120211

REACTIONS (3)
  - HAEMATOMA [None]
  - DRUG INTERACTION [None]
  - INTERNATIONAL NORMALISED RATIO INCREASED [None]
